FAERS Safety Report 5166477-1 (Version None)
Quarter: 2006Q4

REPORT INFORMATION
  Report Type: 
  Country: None (occurrence: None)
  Receive Date: 20061207
  Receipt Date: 20061127
  Transmission Date: 20070319
  Serious: Yes (Other)
  Sender: FDA-Public Use
  Company Number: PHEH2006US14624

PATIENT
  Sex: Male

DRUGS (2)
  1. ARICEPT [Concomitant]
     Dosage: UNK, UNK
  2. DIOVAN [Suspect]
     Indication: HYPERTENSION
     Dosage: 160 MG, QD
     Dates: start: 20060601

REACTIONS (4)
  - COUGH [None]
  - DYSPHONIA [None]
  - FEELING COLD [None]
  - WHEEZING [None]
